FAERS Safety Report 8473142-1 (Version None)
Quarter: 2012Q2

REPORT INFORMATION
  Report Type: 
  Country: None (occurrence: None)
  Receive Date: 20120627
  Receipt Date: 20120622
  Transmission Date: 20120825
  Serious: Yes (Other)
  Sender: FDA-Public Use
  Company Number: US-PFIZER INC-2012151082

PATIENT
  Sex: Male
  Weight: 68.027 kg

DRUGS (4)
  1. LYRICA [Suspect]
     Dosage: UNK
  2. FOSAMAX [Suspect]
     Indication: OSTEOPOROSIS
     Dosage: UNK, DAILY
  3. FLOMAX [Concomitant]
     Indication: PROSTATOMEGALY
     Dosage: UNK
  4. PROSCAR [Concomitant]
     Indication: PROSTATOMEGALY
     Dosage: UNK

REACTIONS (4)
  - JAW DISORDER [None]
  - TOOTHACHE [None]
  - NEPHROPATHY [None]
  - TOOTH DISORDER [None]
